FAERS Safety Report 12076431 (Version 1)
Quarter: 2016Q1

REPORT INFORMATION
  Report Type: Spontaneous
  Country: US (occurrence: US)
  Receive Date: 20160215
  Receipt Date: 20160215
  Transmission Date: 20160526
  Serious: Yes (Other)
  Sender: FDA-Public Use
  Company Number: US-ACCORD-037634

PATIENT
  Sex: Female
  Weight: 117.93 kg

DRUGS (3)
  1. TOPAMAX [Suspect]
     Active Substance: TOPIRAMATE
     Indication: WEIGHT INCREASED
     Dosage: 50 MG, CAPSULES, BY MOUTH, ONCE A DAY
     Route: 048
     Dates: end: 2011
  2. LYRICA [Concomitant]
     Active Substance: PREGABALIN
     Dosage: 300 MG TAKEN AS 50 MG, 6-CAPSULES, BY MOUTH, TWICE A DAY
     Route: 048
     Dates: start: 200511
  3. TOPIRAMATE. [Suspect]
     Active Substance: TOPIRAMATE
     Indication: WEIGHT INCREASED
     Dosage: STARTED AT 25 MG FIRST WEEK MOVED TO 50 MG THE SECOND WEEK, SHE WENT UP TO 100 MG DOSE.
     Dates: start: 2010

REACTIONS (4)
  - Off label use [Unknown]
  - Feeling abnormal [Unknown]
  - Paraesthesia [Unknown]
  - Cognitive disorder [Unknown]
